FAERS Safety Report 26026266 (Version 1)
Quarter: 2025Q4

REPORT INFORMATION
  Report Type: Report from Study
  Country: US (occurrence: US)
  Receive Date: 20251111
  Receipt Date: 20251111
  Transmission Date: 20260117
  Serious: Yes (Hospitalization)
  Sender: GILEAD
  Company Number: US-GILEAD-2025-0735949

PATIENT
  Age: 44 Year
  Sex: Female

DRUGS (21)
  1. AZTREONAM LYSINE [Suspect]
     Active Substance: AZTREONAM LYSINE
     Indication: Cystic fibrosis
     Dosage: INHALE 1 VIAL VIA NEBULIZER THREE TIMESDAILY FOR 28 DAYS ON,THEN 28 DAYS OFF
     Route: 055
     Dates: start: 20160616
  2. ALBUTOL [SALBUTAMOL SULFATE] [Concomitant]
  3. AMITRIPTYLINE [Concomitant]
     Active Substance: AMITRIPTYLINE
  4. ASTELIN [Concomitant]
     Active Substance: AZELASTINE HYDROCHLORIDE
  5. BUPROPION [Concomitant]
     Active Substance: BUPROPION
  6. CETIRIZINE [Concomitant]
     Active Substance: CETIRIZINE HYDROCHLORIDE
  7. CYANOCOBALAMIN [Concomitant]
     Active Substance: CYANOCOBALAMIN
  8. CYCLOBENZAPRINE [Concomitant]
     Active Substance: CYCLOBENZAPRINE
  9. DOCUSATE [Concomitant]
     Active Substance: DOCUSATE
  10. FLONASE [Concomitant]
     Active Substance: FLUTICASONE PROPIONATE
  11. GAS RELIEF [Concomitant]
     Active Substance: DIMETHICONE
  12. IBUPROFEN [Concomitant]
     Active Substance: IBUPROFEN
  13. LEVOTHYROXINE [Concomitant]
     Active Substance: LEVOTHYROXINE
  14. LORATADINE [Concomitant]
     Active Substance: LORATADINE
  15. PROAIR HFA [Concomitant]
     Active Substance: ALBUTEROL SULFATE
  16. RANITIDINE [Concomitant]
     Active Substance: RANITIDINE
  17. SINGULAIR [Concomitant]
     Active Substance: MONTELUKAST SODIUM
  18. SPIRIVA [Concomitant]
     Active Substance: TIOTROPIUM BROMIDE MONOHYDRATE
  19. SYMBICORT [Concomitant]
     Active Substance: BUDESONIDE\FORMOTEROL FUMARATE DIHYDRATE
  20. TOBRAMYCIN [Concomitant]
     Active Substance: TOBRAMYCIN
  21. TRIKAFTA [Concomitant]
     Active Substance: ELEXACAFTOR\IVACAFTOR\TEZACAFTOR

REACTIONS (1)
  - Lung disorder [Unknown]
